FAERS Safety Report 18169266 (Version 1)
Quarter: 2020Q3

REPORT INFORMATION
  Report Type: Spontaneous
  Country: US (occurrence: US)
  Receive Date: 20200819
  Receipt Date: 20200819
  Transmission Date: 20201103
  Serious: No
  Sender: FDA-Public Use
  Company Number: None

PATIENT
  Age: 82 Year
  Sex: Male
  Weight: 89.63 kg

DRUGS (4)
  1. OMEGA 3 [Concomitant]
     Active Substance: OMEGA-3 FATTY ACIDS
  2. TAMSULOSIN [Concomitant]
     Active Substance: TAMSULOSIN
  3. SUTENT [Suspect]
     Active Substance: SUNITINIB MALATE
     Indication: NEOPLASM MALIGNANT
     Route: 048
     Dates: start: 20200710, end: 20200819
  4. ONE A DAY MENS VITACRAVES [Concomitant]

REACTIONS (2)
  - Fatigue [None]
  - Pollakiuria [None]

NARRATIVE: CASE EVENT DATE: 20200819
